FAERS Safety Report 8931459 (Version 1)
Quarter: 2012Q4

REPORT INFORMATION
  Report Type: 
  Country: US (occurrence: US)
  Receive Date: 20121128
  Receipt Date: 20121128
  Transmission Date: 20130627
  Serious: No
  Sender: FDA-Public Use
  Company Number: US-ASTRAZENECA-2012SE86732

PATIENT
  Age: 84 Year
  Sex: Male
  Weight: 93 kg

DRUGS (10)
  1. CRESTOR [Suspect]
     Indication: BLOOD CHOLESTEROL ABNORMAL
     Route: 048
  2. OMEPRAZOLE [Suspect]
     Route: 048
  3. LOSARTEN POTASSIUM [Concomitant]
  4. FLOMAX [Concomitant]
  5. ALLOPURINOL [Concomitant]
  6. ASA [Concomitant]
  7. MULTIVITAMIN [Concomitant]
  8. B12 [Concomitant]
  9. OMEGA 3 [Concomitant]
  10. CALCIUM [Concomitant]

REACTIONS (5)
  - Dementia [Unknown]
  - Confusional state [Unknown]
  - Memory impairment [Unknown]
  - Pain in extremity [Unknown]
  - Arthralgia [Unknown]
